FAERS Safety Report 9094089 (Version 2)
Quarter: 2013Q2

REPORT INFORMATION
  Report Type: Spontaneous
  Country: US (occurrence: None)
  Receive Date: 20130122
  Receipt Date: 20130610
  Transmission Date: 20140414
  Serious: Yes (Other)
  Sender: FDA-Public Use
  Company Number: TPA2013A00828

PATIENT
  Age: 63 Year
  Sex: Male
  Weight: 110.68 kg

DRUGS (1)
  1. ACTOS [Suspect]
     Indication: TYPE 2 DIABETES MELLITUS
     Dosage: STOPPED

REACTIONS (5)
  - Bladder cancer [None]
  - Normochromic normocytic anaemia [None]
  - White blood cell count decreased [None]
  - Small intestinal obstruction [None]
  - Hepatic steatosis [None]
